FAERS Safety Report 10458039 (Version 2)
Quarter: 2014Q4

REPORT INFORMATION
  Report Type: Spontaneous
  Country: CH (occurrence: CH)
  Receive Date: 20140916
  Receipt Date: 20141219
  Transmission Date: 20150528
  Serious: Yes (Hospitalization, Other)
  Sender: FDA-Public Use
  Company Number: CH-ABBVIE-14K-151-1283025-00

PATIENT
  Age: 86 Year
  Sex: Female
  Weight: 55.9 kg

DRUGS (13)
  1. PANTOPRAZOLE [Concomitant]
     Active Substance: PANTOPRAZOLE SODIUM
     Dosage: 1-0-0-0
  2. CALCII CARBONAS, CHOLECALCIFEROLUM (CALCIMAGON FORTE) [Concomitant]
     Indication: PRODUCT USED FOR UNKNOWN INDICATION
     Dosage: 1-0-0-0
  3. ZOLPIDEM [Concomitant]
     Active Substance: ZOLPIDEM\ZOLPIDEM TARTRATE
     Indication: PRODUCT USED FOR UNKNOWN INDICATION
     Dosage: 0-0-1-0
  4. CALCII CARBONAS, CHOLECALCIFEROLUM (CALCIMAGON FORTE) [Concomitant]
     Dosage: 1-0-0-0
  5. SALOFALK [Concomitant]
     Active Substance: MESALAMINE
     Indication: CROHN^S DISEASE
     Route: 048
     Dates: start: 2004
  6. PREDNISONUM [Concomitant]
     Active Substance: PREDNISONE
     Route: 048
     Dates: start: 20140926, end: 20140927
  7. COLCHICINE. [Suspect]
     Active Substance: COLCHICINE
     Indication: PRODUCT USED FOR UNKNOWN INDICATION
     Route: 065
     Dates: start: 201409, end: 201409
  8. PREDNISONUM [Concomitant]
     Active Substance: PREDNISONE
     Route: 048
     Dates: start: 20140919, end: 20140925
  9. PANTOPRAZOLE [Concomitant]
     Active Substance: PANTOPRAZOLE SODIUM
     Indication: PRODUCT USED FOR UNKNOWN INDICATION
     Dosage: 1-0-0-0
  10. PREDNISONUM [Concomitant]
     Active Substance: PREDNISONE
     Indication: CROHN^S DISEASE
     Dosage: 1-0-0-0
     Route: 048
     Dates: start: 20140601
  11. PREDNISONUM [Concomitant]
     Active Substance: PREDNISONE
     Route: 048
     Dates: start: 2014, end: 20140918
  12. PREDNISONUM [Concomitant]
     Active Substance: PREDNISONE
     Route: 048
     Dates: start: 20140928
  13. HUMIRA [Suspect]
     Active Substance: ADALIMUMAB
     Indication: CROHN^S DISEASE
     Route: 058
     Dates: start: 20140822, end: 20140823

REACTIONS (35)
  - Myocarditis [Recovered/Resolved]
  - Staphylococcal bacteraemia [Recovered/Resolved]
  - Atrial fibrillation [Unknown]
  - Viral infection [Unknown]
  - Adverse drug reaction [Unknown]
  - Oropharyngeal pain [Unknown]
  - Tricuspid valve incompetence [Unknown]
  - Platelet count decreased [Unknown]
  - Arteriosclerosis coronary artery [Unknown]
  - Abdominal pain upper [Recovering/Resolving]
  - Emphysema [Unknown]
  - Diverticulum intestinal [Unknown]
  - Pleuropericarditis [Recovering/Resolving]
  - Inflammation [Recovered/Resolved]
  - Device related infection [Recovered/Resolved]
  - Vitamin B12 deficiency [Unknown]
  - Normochromic normocytic anaemia [Unknown]
  - Pulmonary embolism [Recovered/Resolved]
  - Laboratory test abnormal [Unknown]
  - Diarrhoea [Unknown]
  - Lymphadenopathy mediastinal [Unknown]
  - Atrioventricular block first degree [Unknown]
  - Pulmonary valve incompetence [Unknown]
  - White blood cell count increased [Unknown]
  - Blood thyroid stimulating hormone decreased [Unknown]
  - Escherichia urinary tract infection [Recovered/Resolved]
  - C-reactive protein increased [Unknown]
  - Aortic valve calcification [Unknown]
  - Dilatation atrial [Unknown]
  - Serum ferritin increased [Unknown]
  - Hepatomegaly [Unknown]
  - Renal cyst [Unknown]
  - Blood potassium decreased [Unknown]
  - Red cell distribution width increased [Unknown]
  - Gamma-glutamyltransferase increased [Unknown]

NARRATIVE: CASE EVENT DATE: 201409
